FAERS Safety Report 14662902 (Version 1)
Quarter: 2018Q1

REPORT INFORMATION
  Report Type: Spontaneous
  Country: FR (occurrence: FR)
  Receive Date: 20180321
  Receipt Date: 20180321
  Transmission Date: 20180509
  Serious: Yes (Other)
  Sender: FDA-Public Use
  Company Number: FR-MERCK KGAA-2044189

PATIENT
  Age: 44 Year
  Sex: Female

DRUGS (1)
  1. NOVOTHYROX [Suspect]
     Active Substance: LEVOTHYROXINE SODIUM
     Indication: PRODUCT USED FOR UNKNOWN INDICATION
     Dates: start: 2017

REACTIONS (15)
  - Palpitations [None]
  - Loss of personal independence in daily activities [None]
  - Nightmare [None]
  - Emotional disorder [None]
  - Libido decreased [None]
  - Dystonia [None]
  - Middle insomnia [None]
  - Anxiety [None]
  - Alopecia [None]
  - Crying [None]
  - Stress [None]
  - Sleep disorder [None]
  - Headache [None]
  - Irritability [None]
  - Chest pain [None]
